FAERS Safety Report 23469410 (Version 1)
Quarter: 2024Q1

REPORT INFORMATION
  Report Type: Spontaneous
  Country: CN (occurrence: CN)
  Receive Date: 20240202
  Receipt Date: 20240202
  Transmission Date: 20240410
  Serious: Yes (Other)
  Sender: FDA-Public Use
  Company Number: CN-Merck Healthcare KGaA-2024004550

PATIENT
  Age: 26 Year
  Sex: Female
  Weight: 52 kg

DRUGS (14)
  1. LUVERIS [Suspect]
     Active Substance: LUTROPIN ALFA
     Indication: In vitro fertilisation
     Route: 058
     Dates: start: 20240112, end: 20240112
  2. LUVERIS [Suspect]
     Active Substance: LUTROPIN ALFA
     Indication: Ovulation induction
  3. GONAL-F [Suspect]
     Active Substance: FOLLITROPIN
     Indication: In vitro fertilisation
     Route: 058
     Dates: start: 20240112, end: 20240112
  4. GONAL-F [Suspect]
     Active Substance: FOLLITROPIN
     Indication: Ovulation induction
  5. FOLLITROPIN BETA [Suspect]
     Active Substance: FOLLITROPIN BETA
     Indication: In vitro fertilisation
     Route: 058
     Dates: start: 20240103, end: 20240107
  6. FOLLITROPIN BETA [Suspect]
     Active Substance: FOLLITROPIN BETA
     Indication: Ovulation induction
  7. MENOTROPINS [Suspect]
     Active Substance: MENOTROPINS
     Indication: In vitro fertilisation
     Route: 030
     Dates: start: 20240108, end: 20240112
  8. MENOTROPINS [Suspect]
     Active Substance: MENOTROPINS
     Indication: Ovulation induction
     Route: 030
     Dates: start: 20240113, end: 20240113
  9. CHORIONIC GONADOTROPHIN [Suspect]
     Active Substance: CHORIOGONADOTROPIN ALFA
     Indication: In vitro fertilisation
     Route: 030
     Dates: start: 20240113, end: 20240113
  10. CHORIONIC GONADOTROPHIN [Suspect]
     Active Substance: CHORIOGONADOTROPIN ALFA
     Indication: Ovulation induction
  11. SODIUM CHLORIDE [Concomitant]
     Active Substance: SODIUM CHLORIDE
     Indication: Vehicle solution use
     Route: 030
     Dates: start: 20240108, end: 20240112
  12. SODIUM CHLORIDE [Concomitant]
     Active Substance: SODIUM CHLORIDE
     Route: 030
     Dates: start: 20240113, end: 20240113
  13. SODIUM CHLORIDE [Concomitant]
     Active Substance: SODIUM CHLORIDE
     Route: 030
     Dates: start: 20240113, end: 20240113
  14. STERILE WATER [Concomitant]
     Active Substance: WATER
     Indication: Vehicle solution use
     Route: 058
     Dates: start: 20240112, end: 20240112

REACTIONS (6)
  - Ovarian hyperstimulation syndrome [Recovering/Resolving]
  - Abdominal distension [Recovering/Resolving]
  - Abdominal pain [Recovering/Resolving]
  - Chest discomfort [Recovering/Resolving]
  - Palpitations [Recovering/Resolving]
  - Nausea [Recovering/Resolving]

NARRATIVE: CASE EVENT DATE: 20240116
